FAERS Safety Report 8166308-1 (Version None)
Quarter: 2012Q1

REPORT INFORMATION
  Report Type: 
  Country: None (occurrence: None)
  Receive Date: 20120223
  Receipt Date: 20120223
  Transmission Date: 20120608
  Serious: Yes (Death)
  Sender: FDA-Public Use
  Company Number: None

PATIENT
  Sex: Female
  Weight: 59.1 kg

DRUGS (3)
  1. PEGASYS [Suspect]
     Indication: HEPATITIS C
     Dosage: 180 MCG Q WEEK SC
     Route: 058
  2. INCIVEK [Suspect]
     Indication: HEPATITIS C
     Dosage: 375 MG PO
     Route: 048
  3. RIBAVIRIN [Suspect]
     Indication: HEPATITIS C
     Dosage: 400 MG PO
     Route: 048

REACTIONS (1)
  - DEATH [None]
